FAERS Safety Report 5153170-4 (Version None)
Quarter: 2006Q4

REPORT INFORMATION
  Report Type: 
  Country: None (occurrence: None)
  Receive Date: 20061117
  Receipt Date: 20061114
  Transmission Date: 20070319
  Serious: Yes (Hospitalization)
  Sender: FDA-Public Use
  Company Number: US-BRISTOL-MYERS SQUIBB COMPANY-13578539

PATIENT
  Age: 70 Year
  Sex: Female

DRUGS (10)
  1. IRBESARTAN [Suspect]
     Indication: CARDIAC FAILURE
     Route: 048
     Dates: start: 20020905, end: 20020919
  2. IRBESARTAN [Suspect]
     Route: 048
     Dates: start: 20020920, end: 20021002
  3. IRBESARTAN [Suspect]
     Route: 048
     Dates: start: 20021003
  4. BLINDED: PLACEBO [Suspect]
     Dates: start: 20020905
  5. TOPROL-XL [Concomitant]
  6. LASIX [Concomitant]
  7. LEXAPRO [Concomitant]
  8. COUMADIN [Concomitant]
  9. RANITIDINE [Concomitant]
  10. SPIRONOLACTONE [Concomitant]

REACTIONS (1)
  - DYSPNOEA [None]
